FAERS Safety Report 7594727-0 (Version None)
Quarter: 2011Q3

REPORT INFORMATION
  Report Type: 
  Country: None (occurrence: None)
  Receive Date: 20110707
  Receipt Date: 20110630
  Transmission Date: 20111222
  Serious: Yes (Hospitalization)
  Sender: FDA-Public Use
  Company Number: US-JNJFOC-20110700857

PATIENT
  Age: 25 Year
  Sex: Male

DRUGS (7)
  1. INVEGA SUSTENNA [Suspect]
     Indication: SCHIZOAFFECTIVE DISORDER
     Route: 030
     Dates: start: 20110317
  2. LITHIUM CARBONATE [Concomitant]
     Route: 065
  3. RISPERDAL CONSTA [Suspect]
     Indication: SCHIZOAFFECTIVE DISORDER
     Route: 030
     Dates: end: 20110301
  4. WELLBUTRIN [Concomitant]
     Route: 065
  5. INVEGA [Suspect]
     Indication: SCHIZOAFFECTIVE DISORDER
     Dosage: EVERY AM
     Route: 048
     Dates: end: 20110401
  6. RISPERDAL [Suspect]
     Indication: SCHIZOAFFECTIVE DISORDER
     Dosage: EVERY PM
     Route: 048
     Dates: start: 20110401
  7. RISPERDAL CONSTA [Suspect]
     Route: 030
     Dates: start: 20110101

REACTIONS (2)
  - CONDITION AGGRAVATED [None]
  - HYPOMANIA [None]
